FAERS Safety Report 8191686-7 (Version None)
Quarter: 2012Q1

REPORT INFORMATION
  Report Type: 
  Country: None (occurrence: None)
  Receive Date: 20120307
  Receipt Date: 20110519
  Transmission Date: 20120608
  Serious: No
  Sender: FDA-Public Use
  Company Number: US-ASTRAZENECA-2011SE31617

PATIENT
  Age: 65 Year
  Sex: Female

DRUGS (3)
  1. RELPAX [Concomitant]
  2. ZOMIG [Suspect]
     Route: 048
  3. MAXALT [Concomitant]

REACTIONS (2)
  - MIGRAINE [None]
  - EYE PAIN [None]
